FAERS Safety Report 5627200-7 (Version None)
Quarter: 2008Q1

REPORT INFORMATION
  Report Type: 
  Country: None (occurrence: None)
  Receive Date: 20080212
  Receipt Date: 20080212
  Transmission Date: 20080703
  Serious: Yes (Life-Threatening, Hospitalization)
  Sender: FDA-Public Use
  Company Number: None

PATIENT
  Age: 56 Year
  Sex: Female
  Weight: 108 kg

DRUGS (12)
  1. CARBOPLATIN [Suspect]
     Indication: OVARIAN CANCER
     Dosage: 455 MG ONE TIME IV DRIP
     Route: 041
     Dates: start: 20071128, end: 20071128
  2. DEXAMETHASONE TAB [Concomitant]
  3. PALONOSETRON [Concomitant]
  4. POTASSIUM CHLORIDE [Concomitant]
  5. GEMCITABINE [Concomitant]
  6. PANTOPRAZOLE [Concomitant]
  7. TRIAMTERENE AND HYDROCHLOROTHIAZIDE [Concomitant]
  8. PREGABALIN [Concomitant]
  9. WARFARIN SODIUM [Concomitant]
  10. VITAMIN CAP [Concomitant]
  11. VITAMIN TAB [Concomitant]
  12. ALBUTEROL [Concomitant]

REACTIONS (2)
  - ANAPHYLACTIC REACTION [None]
  - CARDIO-RESPIRATORY ARREST [None]
